FAERS Safety Report 5447390-9 (Version None)
Quarter: 2007Q3

REPORT INFORMATION
  Report Type: 
  Country: None (occurrence: None)
  Receive Date: 20070905
  Receipt Date: 20070822
  Transmission Date: 20080115
  Serious: Yes (Hospitalization, Other)
  Sender: FDA-Public Use
  Company Number: 060007L07JPN

PATIENT
  Age: 33 Week
  Sex: Male

DRUGS (2)
  1. CLOMIPHENE CITRATE [Suspect]
     Indication: IN VITRO FERTILISATION
     Dosage: IVF
     Route: 042
  2. UROFOLLITROPIN [Suspect]
     Indication: IN VITRO FERTILISATION
     Dosage: IVF

REACTIONS (12)
  - ABDOMINAL DISTENSION [None]
  - APGAR SCORE LOW [None]
  - ASCITES [None]
  - CAESAREAN SECTION [None]
  - CYTOGENETIC ABNORMALITY [None]
  - DRUG EXPOSURE DURING PREGNANCY [None]
  - FOETAL HEART RATE ABNORMAL [None]
  - PLACENTAL TRANSFUSION SYNDROME [None]
  - PLEURAL EFFUSION [None]
  - POLYHYDRAMNIOS [None]
  - PREMATURE BABY [None]
  - TWIN PREGNANCY [None]
